FAERS Safety Report 15394117 (Version 1)
Quarter: 2018Q3

REPORT INFORMATION
  Report Type: Spontaneous
  Country: HU (occurrence: HU)
  Receive Date: 20180918
  Receipt Date: 20180918
  Transmission Date: 20181010
  Serious: Yes (Other)
  Sender: FDA-Public Use
  Company Number: HU-TEVA-2018-HU-954811

PATIENT
  Age: 52 Year
  Sex: Male

DRUGS (11)
  1. ONDANSETRON [Concomitant]
     Active Substance: ONDANSETRON
     Indication: PREMEDICATION
     Dosage: PRIOR TO EACH CHEMOTHERAPY TREATMENT
     Route: 042
  2. ERBITUX [Concomitant]
     Active Substance: CETUXIMAB
     Indication: RECTAL CANCER
     Route: 042
     Dates: start: 20180307
  3. B?RES CSEPP [Concomitant]
     Route: 048
  4. FLUOROURACIL. [Concomitant]
     Active Substance: FLUOROURACIL
     Dosage: 800MG ON BOTH OF TWO CONSECUTIVE TREATMENT DAYS EVERY TWO WEEKS
     Route: 040
     Dates: start: 20171206
  5. SOLU?MEDROL [Concomitant]
     Active Substance: METHYLPREDNISOLONE SODIUM SUCCINATE
     Indication: PREMEDICATION
     Dosage: PRIOR TO EACH CHEMOTHERAPY TREATMENT
     Route: 042
  6. BENFOGAMMA [Concomitant]
     Indication: NEUROPATHY PERIPHERAL
     Route: 048
  7. ASCORBIC ACID. [Concomitant]
     Active Substance: ASCORBIC ACID
     Dosage: 50 MILLIGRAM DAILY;
     Route: 065
  8. FLUOROURACIL. [Concomitant]
     Active Substance: FLUOROURACIL
     Indication: RECTAL CANCER
     Dosage: 1200MG ON BOTH OF TWO CONSECUTIVE TREATMENT DAYS EVERY TWO WEEKS
     Route: 041
     Dates: start: 20171206
  9. CONTRAMAL [Concomitant]
     Active Substance: TRAMADOL HYDROCHLORIDE
     Indication: PAIN
     Dosage: 1 DOSAGE FORMS DAILY; DF NOT SPECIFIED
     Route: 048
  10. CALCIUM FOLINATE [Suspect]
     Active Substance: LEUCOVORIN CALCIUM
     Indication: RECTAL CANCER
     Dosage: 400MG ON BOTH OF TWO CONSECUTIVE TREATMENT DAYS EVERY TWO WEEKS
     Route: 042
     Dates: start: 20171206, end: 20180725
  11. FENTANYL. [Concomitant]
     Active Substance: FENTANYL
     Indication: PAIN
     Route: 062

REACTIONS (3)
  - Malaise [Recovered/Resolved]
  - Hypersensitivity [Recovered/Resolved]
  - Blood pressure decreased [Recovered/Resolved]

NARRATIVE: CASE EVENT DATE: 20180725
